FAERS Safety Report 5495598-9 (Version None)
Quarter: 2007Q4

REPORT INFORMATION
  Report Type: 
  Country: None (occurrence: None)
  Receive Date: 20071015
  Receipt Date: 20061012
  Transmission Date: 20080405
  Serious: Yes (Other)
  Sender: FDA-Public Use
  Company Number: S06-USA-04260-01

PATIENT
  Age: 87 Year
  Sex: Female

DRUGS (5)
  1. LEXAPRO [Suspect]
     Indication: DEPRESSION
     Dosage: 10 MG QD PO
     Route: 048
     Dates: start: 20060928, end: 20061004
  2. STALEVO                  (LEVODOPA/CARBIDOPA) [Concomitant]
  3. DIOVAN [Concomitant]
  4. IBUPROFEN [Concomitant]
  5. EXCEDRIN MIGRAINE          (ACETAMINOPHEN/ASPIRIN/CAFFEINE) [Concomitant]

REACTIONS (1)
  - BLOOD SODIUM DECREASED [None]
